FAERS Safety Report 19356885 (Version 4)
Quarter: 2021Q4

REPORT INFORMATION
  Report Type: Spontaneous
  Country: JP (occurrence: JP)
  Receive Date: 20210601
  Receipt Date: 20211018
  Transmission Date: 20220303
  Serious: Yes (Disabling, Other)
  Sender: FDA-Public Use
  Company Number: NVSJ2021JP008271

PATIENT
  Age: 66 Year
  Sex: Female
  Weight: 52.6 kg

DRUGS (1)
  1. COSENTYX [Suspect]
     Active Substance: SECUKINUMAB
     Indication: Psoriasis
     Dosage: 300 MG
     Route: 058
     Dates: start: 20200825, end: 20201120

REACTIONS (7)
  - Pyoderma gangrenosum [Recovered/Resolved]
  - Skin ulcer [Unknown]
  - Skin necrosis [Unknown]
  - Dermatitis [Unknown]
  - Rash [Not Recovered/Not Resolved]
  - Pustular psoriasis [Unknown]
  - Erythema [Unknown]

NARRATIVE: CASE EVENT DATE: 20201224
